FAERS Safety Report 8988333 (Version 1)
Quarter: 2012Q4

REPORT INFORMATION
  Report Type: Spontaneous
  Country: US (occurrence: None)
  Receive Date: 20121220
  Receipt Date: 20121220
  Transmission Date: 20130627
  Serious: No
  Sender: FDA-Public Use
  Company Number: None

PATIENT
  Age: 57 Year
  Sex: Male
  Weight: 110.68 kg

DRUGS (1)
  1. DEPO-TESTOSTERONE 200 MCG/ML PFIZER [Suspect]
     Indication: TESTOSTERONE DEFICIENCY
     Dosage: 200 mcg  q 2 weeks  IM
     Route: 030
     Dates: start: 20121114, end: 20121212

REACTIONS (9)
  - Feeling hot [None]
  - Burning sensation [None]
  - Feeling abnormal [None]
  - Palpitations [None]
  - Respiratory disorder [None]
  - Dysgeusia [None]
  - Paraesthesia [None]
  - Pallor [None]
  - Blood pressure diastolic decreased [None]
